FAERS Safety Report 13957719 (Version 1)
Quarter: 2017Q3

REPORT INFORMATION
  Report Type: Spontaneous
  Country: US (occurrence: US)
  Receive Date: 20170912
  Receipt Date: 20170912
  Transmission Date: 20171128
  Serious: No
  Sender: FDA-Public Use
  Company Number: US-TEVA-726192ACC

PATIENT
  Sex: Female

DRUGS (1)
  1. ENSKYCE [Suspect]
     Active Substance: DESOGESTREL\ETHINYL ESTRADIOL
     Dosage: DESOGESTREL /ETHINYLESTRADIOL : 0.1/0.25 MG

REACTIONS (6)
  - Diarrhoea [Unknown]
  - Chills [Unknown]
  - Pyrexia [Unknown]
  - Product colour issue [None]
  - Nausea [Unknown]
  - Vomiting [Unknown]
